FAERS Safety Report 6447265-2 (Version None)
Quarter: 2009Q4

REPORT INFORMATION
  Report Type: 
  Country: None (occurrence: None)
  Receive Date: 20091119
  Receipt Date: 20091106
  Transmission Date: 20100525
  Serious: Yes (Hospitalization, Other)
  Sender: FDA-Public Use
  Company Number: PHHY2009SE48703

PATIENT
  Sex: Male

DRUGS (11)
  1. TEGRETOL RETARD [Suspect]
     Dosage: 1400 MG
  2. TEGRETOL RETARD [Suspect]
     Dosage: 1200 MG
  3. LYRICA [Concomitant]
     Dosage: 150 MG
  4. NULYTELY [Concomitant]
  5. VENLAFAXINE [Concomitant]
  6. KLYX [Concomitant]
  7. MICROLAX [Concomitant]
  8. STESOLID [Concomitant]
     Dosage: 5 MG
  9. LAXOBERAL [Concomitant]
     Dosage: 7.5 MG/ML
  10. FENANTOIN [Concomitant]
     Dosage: 100 MG
  11. KALCIPOS-D [Concomitant]

REACTIONS (3)
  - CONVULSION [None]
  - HEADACHE [None]
  - HYPOKINESIA [None]
